FAERS Safety Report 24175675 (Version 1)
Quarter: 2024Q3

REPORT INFORMATION
  Report Type: Spontaneous
  Country: DE (occurrence: DE)
  Receive Date: 20240805
  Receipt Date: 20240805
  Transmission Date: 20241016
  Serious: Yes (Other)
  Sender: NOVARTIS
  Company Number: DE-002147023-NVSC2024DE124231

PATIENT
  Age: 43 Year
  Sex: Female
  Weight: 58 kg

DRUGS (2)
  1. EXTAVIA [Suspect]
     Active Substance: INTERFERON BETA-1B
     Indication: Multiple sclerosis
     Dosage: UNK (EVERY SECOND DAY)
     Route: 058
     Dates: start: 20131008, end: 20240617
  2. EXTAVIA [Suspect]
     Active Substance: INTERFERON BETA-1B
     Dosage: UNK
     Route: 030

REACTIONS (6)
  - Injection site abscess [Unknown]
  - Myositis [Recovering/Resolving]
  - Injection site pain [Recovering/Resolving]
  - Injection site movement impairment [Recovering/Resolving]
  - Muscle oedema [Unknown]
  - Incorrect route of product administration [Unknown]

NARRATIVE: CASE EVENT DATE: 20240424
